FAERS Safety Report 13735398 (Version 1)
Quarter: 2017Q3

REPORT INFORMATION
  Report Type: Spontaneous
  Country: US (occurrence: US)
  Receive Date: 20170709
  Receipt Date: 20170709
  Transmission Date: 20171127
  Serious: Yes (Life-Threatening, Other)
  Sender: FDA-Public Use
  Company Number: None

PATIENT
  Age: 51 Year
  Sex: Female
  Weight: 67.05 kg

DRUGS (8)
  1. GABAPENTIN. [Concomitant]
     Active Substance: GABAPENTIN
  2. FLEXERIL [Concomitant]
     Active Substance: CYCLOBENZAPRINE HYDROCHLORIDE
  3. METAPROLOL [Concomitant]
     Active Substance: METOPROLOL
  4. CLONAZEPAM 2MG [Suspect]
     Active Substance: CLONAZEPAM
     Indication: ANXIETY
     Dosage: ?          OTHER STRENGTH:MG;QUANTITY:30 TABLET(S);?
     Route: 048
  5. NORCO C STEROID [Concomitant]
  6. LAMOTRAGINE [Concomitant]
     Active Substance: LAMOTRIGINE
  7. CLONAZEPAM 2MG [Suspect]
     Active Substance: CLONAZEPAM
     Indication: INSOMNIA
     Dosage: ?          OTHER STRENGTH:MG;QUANTITY:30 TABLET(S);?
     Route: 048
  8. MAGNESIUM GLYCINATE [Concomitant]
     Active Substance: MAGNESIUM GLYCINATE

REACTIONS (32)
  - Amino acid level abnormal [None]
  - Burning sensation [None]
  - Withdrawal syndrome [None]
  - Dysstasia [None]
  - Reading disorder [None]
  - Memory impairment [None]
  - Sensory disturbance [None]
  - Suicide attempt [None]
  - Partner stress [None]
  - Nervous system disorder [None]
  - Dysphagia [None]
  - Loss of personal independence in daily activities [None]
  - Panic attack [None]
  - Cognitive disorder [None]
  - Restless legs syndrome [None]
  - Rapid eye movements sleep abnormal [None]
  - Blood pressure increased [None]
  - Feeling abnormal [None]
  - Mastication disorder [None]
  - Impaired self-care [None]
  - Diarrhoea [None]
  - Photophobia [None]
  - Palpitations [None]
  - Dyspnoea [None]
  - Suicidal ideation [None]
  - Weight increased [None]
  - Depression [None]
  - Insomnia [None]
  - Social avoidant behaviour [None]
  - Skin burning sensation [None]
  - Poor personal hygiene [None]
  - Impaired work ability [None]

NARRATIVE: CASE EVENT DATE: 20160501
